FAERS Safety Report 8482449-3 (Version None)
Quarter: 2012Q3

REPORT INFORMATION
  Report Type: 
  Country: None (occurrence: None)
  Receive Date: 20120702
  Receipt Date: 20120625
  Transmission Date: 20120928
  Serious: Yes (Other)
  Sender: FDA-Public Use
  Company Number: JP-GLAXOSMITHKLINE-B0808722A

PATIENT
  Age: 69 Year
  Sex: Female

DRUGS (5)
  1. PREDNISOLONE [Concomitant]
     Dosage: 15MG PER DAY
     Route: 048
  2. ATOVAQUONE [Suspect]
     Indication: PNEUMOCYSTIS JIROVECI PNEUMONIA
     Dosage: 10ML PER DAY
     Route: 048
     Dates: start: 20120604
  3. FAMOTIDINE [Concomitant]
     Dosage: 20MG PER DAY
     Route: 048
  4. MAGMITT [Concomitant]
     Dosage: 990MG PER DAY
     Route: 048
  5. ALENDRONATE SODIUM [Concomitant]
     Route: 048

REACTIONS (1)
  - BLOOD BILIRUBIN INCREASED [None]
